FAERS Safety Report 23422392 (Version 1)
Quarter: 2024Q1

REPORT INFORMATION
  Report Type: Spontaneous
  Country: CN (occurrence: CN)
  Receive Date: 20240119
  Receipt Date: 20240119
  Transmission Date: 20240410
  Serious: Yes (Hospitalization)
  Sender: FDA-Public Use
  Company Number: CN-002147023-NVSC2024CN010242

PATIENT
  Age: 86 Year
  Sex: Male
  Weight: 60 kg

DRUGS (3)
  1. SACUBITRIL\VALSARTAN [Suspect]
     Active Substance: SACUBITRIL\VALSARTAN
     Indication: Hypertension
     Dosage: 200 MG, BID
     Route: 048
     Dates: start: 20231222, end: 20231230
  2. CEFTAZIDIME [Suspect]
     Active Substance: CEFTAZIDIME
     Indication: Infection
     Dosage: 2 G, BID
     Route: 041
     Dates: start: 20231224, end: 20231229
  3. INDAPAMIDE [Suspect]
     Active Substance: INDAPAMIDE
     Indication: Hypertension
     Dosage: 1.500 MG, QD
     Route: 048
     Dates: start: 20231222, end: 20231228

REACTIONS (3)
  - Renal impairment [Unknown]
  - Urine output decreased [Unknown]
  - Asthenia [Unknown]

NARRATIVE: CASE EVENT DATE: 20231229
